FAERS Safety Report 21169431 (Version 5)
Quarter: 2022Q4

REPORT INFORMATION
  Report Type: Report from Study
  Country: US (occurrence: US)
  Receive Date: 20220804
  Receipt Date: 20221228
  Transmission Date: 20230113
  Serious: No
  Sender: FDA-Public Use
  Company Number: US-NOVARTISTESTPH-NVSC2022US175918

PATIENT
  Sex: Female

DRUGS (1)
  1. PIQRAY [Suspect]
     Active Substance: ALPELISIB
     Indication: Product used for unknown indication
     Dosage: 300 MG, QD (TAKE 1 PO BID)
     Route: 048
     Dates: start: 20220610

REACTIONS (4)
  - Glossodynia [Unknown]
  - COVID-19 [Unknown]
  - Fall [Unknown]
  - Haematoma [Unknown]
